FAERS Safety Report 11147037 (Version 5)
Quarter: 2016Q3

REPORT INFORMATION
  Report Type: Spontaneous
  Country: US (occurrence: US)
  Receive Date: 20150528
  Receipt Date: 20160728
  Transmission Date: 20161109
  Serious: Yes (Hospitalization, Other)
  Sender: FDA-Public Use
  Company Number: US-PFIZER INC-2015177045

PATIENT
  Age: 61 Year
  Sex: Female
  Weight: 129 kg

DRUGS (55)
  1. BACLOFEN. [Concomitant]
     Active Substance: BACLOFEN
     Indication: CATHETER PLACEMENT
  2. CALCIUM/VITAMIN D3 [Concomitant]
     Indication: OSTEOPOROSIS
     Dosage: ((600MG CALCIUM MIXED TOGETHER WITH 400 VITAMIN D))1 DF, 3X/DAY
  3. VITAMIN C [Concomitant]
     Active Substance: ASCORBIC ACID
     Dosage: 500 MG, 3X/DAY
  4. HYDROCODONE BITARTRATE AND ACETAMINOPHEN [Concomitant]
     Active Substance: ACETAMINOPHEN\HYDROCODONE BITARTRATE
     Indication: PAIN
     Dosage: (HYDROCODONE 5 MG-ACETAMINOPHEN 325 MG ONE EVERY SIX HOURS), AS NEEDED
  5. HYDROCODONE BITARTRATE AND ACETAMINOPHEN [Concomitant]
     Active Substance: ACETAMINOPHEN\HYDROCODONE BITARTRATE
     Dosage: UNK, 1X/DAY
  6. METFORMIN [Concomitant]
     Active Substance: METFORMIN HYDROCHLORIDE
     Indication: DIABETES MELLITUS
     Dosage: 500 MG, 1X/DAY
  7. LORATADINE. [Concomitant]
     Active Substance: LORATADINE
     Indication: ANTIALLERGIC THERAPY
     Dosage: 10 MG, 2X/DAY
  8. FUROSEMIDE. [Concomitant]
     Active Substance: FUROSEMIDE
     Dosage: 40 MG, 4X/DAY
  9. GABAPENTIN. [Concomitant]
     Active Substance: GABAPENTIN
     Indication: DIABETES MELLITUS
  10. BIOTIN [Concomitant]
     Active Substance: BIOTIN
     Indication: HAIR GROWTH ABNORMAL
     Dosage: 1 DF, TABLET DAILY
  11. VITAMIN C [Concomitant]
     Active Substance: ASCORBIC ACID
     Dosage: 500 MG, 2X/DAY (TWICE A DAY WITH IRON)
  12. MULTIVITAMINS [Concomitant]
     Active Substance: VITAMINS
     Dosage: UNK, 1X/DAY
  13. DOCUSATE SODIUM. [Concomitant]
     Active Substance: DOCUSATE SODIUM
     Indication: FAECES SOFT
     Dosage: 100 MG, AS NEEDED
  14. POLYETHYLENE GLYCOL [Concomitant]
     Active Substance: POLYETHYLENE GLYCOLS
     Indication: DIARRHOEA
     Dosage: 255 G, UNK
  15. HYDROCODONE [Concomitant]
     Active Substance: HYDROCODONE
     Indication: PAIN
     Dosage: UNK UNK, 2X/DAY(5/325)(SHE CAN TAKE IT BID AND SHE USUALLY TAKE IT ONCE A DAY AT NIGHT)
  16. SLO-NIACIN [Concomitant]
     Active Substance: DIETARY SUPPLEMENT
     Indication: BLOOD CHOLESTEROL
     Dosage: 500 MG, 1X/DAY
  17. WARFARIN [Concomitant]
     Active Substance: WARFARIN
  18. PANTOPRAZOLE [Concomitant]
     Active Substance: PANTOPRAZOLE SODIUM
     Dosage: 40 MG, 2X/DAY
  19. LASIX [Concomitant]
     Active Substance: FUROSEMIDE
     Dosage: 160 MG, 1X/DAY
  20. COUMADIN [Concomitant]
     Active Substance: WARFARIN SODIUM
     Indication: PULMONARY HYPERTENSION
     Dosage: 7.5 MG, DAILY(TAKE 1 PILL EVERY DAY EXCEPT WED WHICH IS HALF A PILL)
  21. IRON [Concomitant]
     Active Substance: IRON
     Dosage: 65 MG, 2X/DAY
  22. METOPROLOL SUCCINATE ER [Concomitant]
     Active Substance: METOPROLOL SUCCINATE
     Indication: ATRIAL FIBRILLATION
     Dosage: 1 DF, DAILY
  23. NIACIN ER [Concomitant]
     Active Substance: NIACIN
     Indication: BLOOD CHOLESTEROL INCREASED
     Dosage: 500 MG, 1X/DAY
  24. CALCIUM [Concomitant]
     Active Substance: CALCIUM
     Indication: OSTEOPOROSIS
     Dosage: 600 MG, 3X/DAY
  25. REMODULIN [Concomitant]
     Active Substance: TREPROSTINIL
     Indication: PULMONARY HYPERTENSION
     Dosage: 71 NG, DAILY
     Route: 042
  26. GABAPENTIN. [Concomitant]
     Active Substance: GABAPENTIN
     Indication: POST POLIO SYNDROME
     Dosage: 600 MG, 3X/DAY
  27. GABAPENTIN. [Concomitant]
     Active Substance: GABAPENTIN
     Indication: MUSCLE SPASMS
  28. BACLOFEN. [Concomitant]
     Active Substance: BACLOFEN
     Indication: MUSCLE SPASMS
     Dosage: 10 MG, 4X/DAY
  29. METOLAZONE. [Concomitant]
     Active Substance: METOLAZONE
     Indication: CARDIAC FAILURE CONGESTIVE
     Dosage: 2.5 MG, EVERY THIRD
  30. BUMEX [Concomitant]
     Active Substance: BUMETANIDE
     Indication: CARDIAC FAILURE CONGESTIVE
     Dosage: 2.5 MG, EVERY THIRD
  31. RANITIDINE. [Concomitant]
     Active Substance: RANITIDINE
     Dosage: 75 MG, 2X/DAY
  32. OXYBUTYNIN [Concomitant]
     Active Substance: OXYBUTYNIN
     Indication: URINARY TRACT INFECTION
     Dosage: 15 MG, 1X/DAY
  33. BIOTIN [Concomitant]
     Active Substance: BIOTIN
     Indication: NAIL GROWTH ABNORMAL
     Dosage: 1000 MG, 1X/DAY
  34. CRANBERRY. [Concomitant]
     Active Substance: CRANBERRY
     Indication: URINARY TRACT INFECTION
     Dosage: 300 MG, 3X/DAY
  35. NYSTATIN. [Concomitant]
     Active Substance: NYSTATIN
     Indication: FUNGAL INFECTION
     Dosage: UNK, AS NEEDED
  36. REVATIO [Suspect]
     Active Substance: SILDENAFIL CITRATE
     Indication: PULMONARY ARTERIAL HYPERTENSION
     Dosage: 20 MG, 3X/DAY
     Route: 048
  37. GABAPENTIN. [Concomitant]
     Active Substance: GABAPENTIN
     Indication: NEUROPATHY PERIPHERAL
  38. CLARITIN [Concomitant]
     Active Substance: LORATADINE
     Dosage: 10 MG, 2X/DAY
  39. LASIX [Concomitant]
     Active Substance: FUROSEMIDE
     Indication: CARDIAC FAILURE CONGESTIVE
     Dosage: 40 MG, TABLET 3 EVERY MORNING, ADDITIONAL 80MG IF GAIN WEIGHT
  40. METOLAZONE. [Concomitant]
     Active Substance: METOLAZONE
     Indication: CARDIAC DISORDER
  41. SUPER B COMPLEX [Concomitant]
     Active Substance: CYANOCOBALAMIN\DEXPANTHENOL\NIACINAMIDE\PYRIDOXINE HYDROCHLORIDE\RIBOFLAVIN 5^-PHOSPHATE SODIUM\THIAMINE HYDROCHLORIDE\VITAMIN B COMPLEX
     Dosage: UNK, 1X/DAY
  42. FLUTICASONE PROPIONATE. [Concomitant]
     Active Substance: FLUTICASONE PROPIONATE
     Dosage: UNK, DAILY (100MCG 2 SPRAY EACH NOSTRIL DAILY PRN)
     Route: 045
  43. OXYGEN. [Concomitant]
     Active Substance: OXYGEN
     Dosage: UNK
     Dates: start: 2008
  44. METOPROLOL. [Concomitant]
     Active Substance: METOPROLOL
     Indication: ATRIAL FIBRILLATION
     Dosage: 100 MG, 1X/DAY
  45. SPIRONOLACTONE. [Concomitant]
     Active Substance: SPIRONOLACTONE
     Dosage: 50 MG, 2X/DAY
  46. MIRALAX [Concomitant]
     Active Substance: POLYETHYLENE GLYCOL 3350
     Indication: FAECES SOFT
     Dosage: UNK, AS NEEDED
  47. POTASSIUM CHLORIDE. [Concomitant]
     Active Substance: POTASSIUM CHLORIDE
     Indication: MINERAL SUPPLEMENTATION
     Dosage: 20 MEQ, 1X/DAY(10 PILLS A DAY)
  48. GABAPENTIN. [Concomitant]
     Active Substance: GABAPENTIN
     Indication: PAIN
  49. CARDIZEM [Concomitant]
     Active Substance: DILTIAZEM HYDROCHLORIDE
     Indication: ATRIAL FIBRILLATION
     Dosage: 300 MG, 1X/DAY
  50. CALCIUM/VITAMIN D3 [Concomitant]
     Dosage: 600 MG, UNK
  51. FLONASE [Concomitant]
     Active Substance: FLUTICASONE PROPIONATE
     Indication: NASAL DISCOMFORT
     Dosage: (TWO SPRAYS IN BOTH NOSE)
     Route: 045
  52. NYSTATIN. [Concomitant]
     Active Substance: NYSTATIN
     Indication: FUNGAL INFECTION
     Dosage: UNK, AS NEEDED
  53. AMIODARONE HCL [Concomitant]
     Active Substance: AMIODARONE HYDROCHLORIDE
     Indication: ARRHYTHMIA
     Dosage: 100 MG, DAILY
  54. SUPER B COMPLEX [Concomitant]
     Active Substance: CYANOCOBALAMIN\DEXPANTHENOL\NIACINAMIDE\PYRIDOXINE HYDROCHLORIDE\RIBOFLAVIN 5^-PHOSPHATE SODIUM\THIAMINE HYDROCHLORIDE\VITAMIN B COMPLEX
     Indication: ANAEMIA
     Dosage: UNK (500MG TAKE WITH IRON AND VITAMIN C TWICE A DAY)
  55. CARTIA XT [Concomitant]
     Active Substance: DILTIAZEM HYDROCHLORIDE
     Dosage: 240 MG, 1X/DAY

REACTIONS (21)
  - Supraventricular tachycardia [Not Recovered/Not Resolved]
  - Impaired healing [Not Recovered/Not Resolved]
  - Emotional disorder [Unknown]
  - Fibula fracture [Not Recovered/Not Resolved]
  - Femur fracture [Unknown]
  - Pain in extremity [Unknown]
  - Ankle fracture [Not Recovered/Not Resolved]
  - Gastrointestinal haemorrhage [Not Recovered/Not Resolved]
  - Arrhythmia [Not Recovered/Not Resolved]
  - Fall [Unknown]
  - Lower limb fracture [Recovering/Resolving]
  - Atrial fibrillation [Unknown]
  - Pulmonary hypertension [Not Recovered/Not Resolved]
  - Hypotension [Unknown]
  - Herpes zoster [Unknown]
  - Pulmonary embolism [Not Recovered/Not Resolved]
  - Haemorrhage [Unknown]
  - Dizziness [Unknown]
  - Back pain [Unknown]
  - Depressed mood [Recovering/Resolving]
  - Abnormal faeces [Unknown]

NARRATIVE: CASE EVENT DATE: 2012
